FAERS Safety Report 9828596 (Version 3)
Quarter: 2014Q1

REPORT INFORMATION
  Report Type: Spontaneous
  Country: GB (occurrence: GB)
  Receive Date: 20140117
  Receipt Date: 20140217
  Transmission Date: 20141002
  Serious: Yes (Death, Hospitalization)
  Sender: FDA-Public Use
  Company Number: GB-009507513-1401GBR002816

PATIENT
  Age: 80 Year
  Sex: Male

DRUGS (1)
  1. DANAPAROID SODIUM [Suspect]
     Indication: ANTICOAGULANT THERAPY
     Route: 042

REACTIONS (1)
  - Drug ineffective [Fatal]
